FAERS Safety Report 17515480 (Version 1)
Quarter: 2020Q1

REPORT INFORMATION
  Report Type: Spontaneous
  Country: JP (occurrence: JP)
  Receive Date: 20200309
  Receipt Date: 20200309
  Transmission Date: 20200409
  Serious: Yes (Other)
  Sender: FDA-Public Use
  Company Number: JP-TEVA-2020-JP-002154J

PATIENT
  Age: 55 Year
  Sex: Female
  Weight: 50 kg

DRUGS (8)
  1. ZETIA [Concomitant]
     Active Substance: EZETIMIBE
     Route: 065
  2. ADEFURONIC TABLET 25MG [Suspect]
     Active Substance: DICLOFENAC SODIUM
     Indication: PROCEDURAL PAIN
     Route: 048
     Dates: start: 20200210, end: 20200210
  3. CEFACLOR. [Suspect]
     Active Substance: CEFACLOR
     Indication: INFECTION PROPHYLAXIS
     Route: 048
     Dates: start: 20200210
  4. BEPOTASTINE BESILATE OD [Concomitant]
     Route: 065
  5. PAXIL CR [Concomitant]
     Active Substance: PAROXETINE HYDROCHLORIDE
     Route: 065
  6. ETHYL LOFLAZEPATE [Concomitant]
     Active Substance: ETHYL LOFLAZEPATE
     Route: 065
  7. EVAMYL [Concomitant]
     Active Substance: LORMETAZEPAM
     Route: 065
  8. LOXOPROFEN [Concomitant]
     Active Substance: LOXOPROFEN
     Route: 065

REACTIONS (1)
  - Anaphylactic shock [Recovered/Resolved]

NARRATIVE: CASE EVENT DATE: 20200210
